FAERS Safety Report 19830910 (Version 1)
Quarter: 2021Q3

REPORT INFORMATION
  Report Type: Spontaneous
  Country: US (occurrence: US)
  Receive Date: 20210915
  Receipt Date: 20210915
  Transmission Date: 20211014
  Serious: Yes (Other)
  Sender: FDA-Public Use
  Company Number: None

PATIENT
  Age: 37 Year
  Sex: Female

DRUGS (9)
  1. ZAFEMY [Suspect]
     Active Substance: ETHINYL ESTRADIOL\NORELGESTROMIN
     Indication: ENDOMETRIOSIS
     Dosage: ?          QUANTITY:1 PATCH(ES);OTHER FREQUENCY:WEEKLY;?
     Route: 061
     Dates: start: 20210726, end: 20210831
  2. SUCRALSATE [Concomitant]
  3. ZOFRAN [Concomitant]
     Active Substance: ONDANSETRON HYDROCHLORIDE
  4. NAPROSYN 250 MG [Concomitant]
  5. HYDROCOODONE/APAP 5/325 [Concomitant]
  6. ZAFEMY [Suspect]
     Active Substance: ETHINYL ESTRADIOL\NORELGESTROMIN
     Indication: CONTRACEPTION
     Dosage: ?          QUANTITY:1 PATCH(ES);OTHER FREQUENCY:WEEKLY;?
     Route: 061
     Dates: start: 20210726, end: 20210831
  7. MESSEAMIC ACID [Concomitant]
  8. FAMOTIDINE. [Concomitant]
     Active Substance: FAMOTIDINE
  9. LEXAPRO [Concomitant]
     Active Substance: ESCITALOPRAM OXALATE

REACTIONS (8)
  - Vomiting [None]
  - Endometriosis [None]
  - Intermenstrual bleeding [None]
  - Manufacturing issue [None]
  - Pain [None]
  - Gallbladder disorder [None]
  - Product adhesion issue [None]
  - Nausea [None]

NARRATIVE: CASE EVENT DATE: 20210831
